FAERS Safety Report 9329398 (Version 1)
Quarter: 2013Q2

REPORT INFORMATION
  Report Type: Report from Study
  Country: US (occurrence: US)
  Receive Date: 20130604
  Receipt Date: 20130604
  Transmission Date: 20140414
  Serious: Yes (Hospitalization)
  Sender: FDA-Public Use
  Company Number: US-EISAI INC-E2020-12403-SOL-US

PATIENT
  Age: 71 Year
  Sex: Female
  Weight: 72.64 kg

DRUGS (18)
  1. ARICEPT [Suspect]
     Indication: DEMENTIA ALZHEIMER^S TYPE
     Dosage: UNKNOWN
     Route: 048
     Dates: end: 2013
  2. HUMIRA [Suspect]
     Indication: PSORIATIC ARTHROPATHY
     Dosage: UNKNOWN
     Dates: start: 2013
  3. HUMIRA [Suspect]
     Indication: ANKYLOSING SPONDYLITIS
  4. HALCION [Suspect]
     Indication: DEMENTIA ALZHEIMER^S TYPE
     Dosage: UNKNOWN
     Route: 065
     Dates: end: 2013
  5. BIVANCE [Suspect]
     Indication: DEMENTIA ALZHEIMER^S TYPE
     Dosage: UNKNOWN
     Route: 065
     Dates: end: 2013
  6. NORVASC [Concomitant]
  7. MECLIZINE [Concomitant]
  8. INDERAL [Concomitant]
  9. POTASSIUM [Concomitant]
  10. VITAMIN D [Concomitant]
  11. VITAMIN E [Concomitant]
  12. FOLIC ACID [Concomitant]
  13. ZINC [Concomitant]
  14. MAGNESIUM [Concomitant]
  15. ZOCOR [Concomitant]
  16. ROPINEROLE [Concomitant]
  17. XANAX [Concomitant]
  18. VITAMIN B12 [Concomitant]

REACTIONS (4)
  - Coma [Recovered/Resolved]
  - Gas poisoning [Recovered/Resolved]
  - Dysarthria [Recovered/Resolved]
  - Hallucination [Recovered/Resolved]
